FAERS Safety Report 24394454 (Version 1)
Quarter: 2024Q4

REPORT INFORMATION
  Report Type: Spontaneous
  Country: KR (occurrence: KR)
  Receive Date: 20241004
  Receipt Date: 20241004
  Transmission Date: 20250115
  Serious: Yes (Hospitalization, Other)
  Sender: BRISTOL MYERS SQUIBB
  Company Number: KR-BRISTOL-MYERS SQUIBB COMPANY-2024-154369

PATIENT
  Sex: Male

DRUGS (8)
  1. BARACLUDE [Suspect]
     Active Substance: ENTECAVIR
     Indication: Product used for unknown indication
     Dates: start: 20180625
  2. FUROSEMIDE [Concomitant]
     Active Substance: FUROSEMIDE
     Indication: Product used for unknown indication
     Dates: start: 20200221
  3. FUROSEMIDE [Concomitant]
     Active Substance: FUROSEMIDE
     Dates: start: 20191106
  4. SPIRONOLACTONE [Concomitant]
     Active Substance: SPIRONOLACTONE
     Indication: Product used for unknown indication
     Dates: start: 20191106
  5. LOPERAMIDE HYDROCHLORIDE [Concomitant]
     Active Substance: LOPERAMIDE HYDROCHLORIDE
     Indication: Product used for unknown indication
     Dates: start: 20191204
  6. THIAMINE HYDROCHLORIDE [Concomitant]
     Active Substance: THIAMINE HYDROCHLORIDE
     Indication: Product used for unknown indication
     Dates: start: 20200221
  7. ORNITHINE ASPARTATE [Concomitant]
     Active Substance: ORNITHINE ASPARTATE
     Indication: Product used for unknown indication
     Dates: start: 20200221
  8. PROPRANOLOL HYDROCHLORIDE [Concomitant]
     Active Substance: PROPRANOLOL HYDROCHLORIDE
     Indication: Product used for unknown indication
     Dates: start: 20180625

REACTIONS (1)
  - Hepatic encephalopathy [Recovering/Resolving]

NARRATIVE: CASE EVENT DATE: 20200221
